FAERS Safety Report 9148860 (Version 5)
Quarter: 2013Q4

REPORT INFORMATION
  Report Type: Spontaneous
  Country: GB (occurrence: None)
  Receive Date: 20130131
  Receipt Date: 20131022
  Transmission Date: 20140711
  Serious: Yes (Other)
  Sender: FDA-Public Use
  Company Number: AUR-APL-2013-00969

PATIENT
  Age: 70 Year
  Sex: Female

DRUGS (6)
  1. METFORMIN [Suspect]
     Indication: TYPE 2 DIABETES MELLITUS
     Dosage: 1500 MG (500 MG,3 IN 1 D)
     Route: 048
     Dates: end: 20121217
  2. ALENDRONATE (ALENDRONATE SODIUM) [Concomitant]
  3. ATORVASTATIN (ATORVASTATIN) [Concomitant]
  4. LATANOPROST(LATANOPROST) [Concomitant]
  5. PANTOPRAZOLE(PANTOPRAZOLE) [Concomitant]
  6. PIOGLITAZONE(PIOGLITAZONE) [Concomitant]

REACTIONS (5)
  - Vision blurred [None]
  - Migraine [None]
  - Blindness transient [None]
  - Lactic acidosis [None]
  - Headache [None]
